FAERS Safety Report 21654455 (Version 1)
Quarter: 2022Q4

REPORT INFORMATION
  Report Type: Spontaneous
  Country: US (occurrence: US)
  Receive Date: 20221129
  Receipt Date: 20221129
  Transmission Date: 20230113
  Serious: Yes (Other)
  Sender: FDA-Public Use
  Company Number: US-SA-SAC20221128000166

PATIENT
  Sex: Male

DRUGS (4)
  1. ELOCTATE [Suspect]
     Active Substance: EFMOROCTOCOG ALFA
     Indication: Factor VIII deficiency
     Dosage: 4150 U (3735-4565) , EVERY 12-24 HRS
     Route: 042
  2. ELOCTATE [Suspect]
     Active Substance: EFMOROCTOCOG ALFA
     Indication: Factor VIII deficiency
     Dosage: 4150 U (3735-4565) , EVERY 12-24 HRS
     Route: 042
  3. ELOCTATE [Suspect]
     Active Substance: EFMOROCTOCOG ALFA
     Dosage: 2400 UNITS (2160-2640) FOR MINOR/MODERATE JOINT BLEEDS, EVERY 24-48 HOURS IF NEEDED
     Route: 042
  4. ELOCTATE [Suspect]
     Active Substance: EFMOROCTOCOG ALFA
     Dosage: 2400 UNITS (2160-2640) FOR MINOR/MODERATE JOINT BLEEDS, EVERY 24-48 HOURS IF NEEDED
     Route: 042

REACTIONS (1)
  - Haemorrhage [Unknown]
